FAERS Safety Report 5843749-6 (Version None)
Quarter: 2008Q3

REPORT INFORMATION
  Report Type: 
  Country: None (occurrence: None)
  Receive Date: 20080813
  Receipt Date: 20080708
  Transmission Date: 20090109
  Serious: Yes (Other)
  Sender: FDA-Public Use
  Company Number: US-BRISTOL-MYERS SQUIBB COMPANY-14226757

PATIENT
  Age: 71 Year
  Sex: Female

DRUGS (15)
  1. IXEMPRA KIT [Suspect]
     Indication: BREAST CANCER METASTATIC
     Dosage: 25 % DOSE REDUCED FOR CYCLE 3 ON 19JUN08
     Route: 042
     Dates: start: 20080509
  2. AVASTIN [Concomitant]
     Indication: PREMEDICATION
  3. FASLODEX [Concomitant]
     Indication: PREMEDICATION
  4. HERCEPTIN [Concomitant]
     Indication: PREMEDICATION
  5. FLUOROURACIL [Concomitant]
     Indication: PREMEDICATION
  6. TYKERB [Concomitant]
     Indication: PREMEDICATION
  7. NAVELBINE [Concomitant]
     Indication: PREMEDICATION
  8. GEMZAR [Concomitant]
     Indication: PREMEDICATION
  9. AROMASIN [Concomitant]
     Indication: PREMEDICATION
  10. TAXOTERE [Concomitant]
     Indication: PREMEDICATION
  11. ADRIAMYCIN PFS [Concomitant]
     Indication: PREMEDICATION
  12. CYTOXAN [Concomitant]
     Indication: PREMEDICATION
  13. TAMOXIFEN CITRATE [Concomitant]
     Indication: PREMEDICATION
  14. TAXOL [Concomitant]
     Indication: PREMEDICATION
  15. LEUCOVORIN CALCIUM [Concomitant]
     Indication: PREMEDICATION

REACTIONS (1)
  - HAEMOGLOBIN DECREASED [None]
